FAERS Safety Report 9851902 (Version 2)
Quarter: 2014Q1

REPORT INFORMATION
  Report Type: Spontaneous
  Country: FR (occurrence: FR)
  Receive Date: 20140129
  Receipt Date: 20140213
  Transmission Date: 20141002
  Serious: Yes (Life-Threatening, Hospitalization, Other)
  Sender: FDA-Public Use
  Company Number: FR-ELI_LILLY_AND_COMPANY-FR201401005993

PATIENT
  Age: 60 Year
  Sex: Female

DRUGS (16)
  1. ZYPREXA [Suspect]
     Indication: DEPRESSION
     Dosage: 5 MG, QD
     Route: 048
     Dates: start: 201210
  2. ZYPREXA [Interacting]
     Dosage: 20 MG, QD
     Route: 048
     Dates: start: 20121004, end: 20121026
  3. ZYPREXA [Interacting]
     Dosage: 5 MG, UNKNOWN
     Route: 065
     Dates: start: 20131108, end: 20131116
  4. ZYPREXA [Interacting]
     Dosage: 7.5 MG, UNKNOWN
     Route: 065
     Dates: start: 20131116, end: 20131118
  5. ZYPREXA [Interacting]
     Dosage: 15 MG, UNKNOWN
     Route: 065
     Dates: start: 20131118, end: 20131122
  6. ZYPREXA [Interacting]
     Dosage: 10 MG, UNKNOWN
     Route: 065
     Dates: start: 20131122, end: 20140107
  7. ZYPREXA [Interacting]
     Dosage: 20 MG, QD
     Route: 065
     Dates: start: 20140107
  8. LOXAPAC /00401801/ [Suspect]
     Indication: DEPRESSION
     Dosage: 70 GTT, QD
     Route: 048
     Dates: end: 20121024
  9. PROCORALAN [Interacting]
     Indication: PRODUCT USED FOR UNKNOWN INDICATION
     Dosage: 1 DF, UNK
     Route: 065
     Dates: end: 20131116
  10. HEMIGOXINE NATIVELLE [Concomitant]
     Indication: PRODUCT USED FOR UNKNOWN INDICATION
     Dosage: 0.125 MG, UNKNOWN
     Route: 065
  11. DOLIPRANE [Concomitant]
     Indication: PRODUCT USED FOR UNKNOWN INDICATION
     Dosage: 1 DF, UNKNOWN
     Route: 065
  12. IMOVANE [Concomitant]
     Indication: PRODUCT USED FOR UNKNOWN INDICATION
     Dosage: 1 DF, UNKNOWN
     Route: 065
  13. SERESTA [Concomitant]
     Indication: PRODUCT USED FOR UNKNOWN INDICATION
     Dosage: 75 MG, QD
     Route: 065
  14. SEROPLEX [Concomitant]
     Indication: PRODUCT USED FOR UNKNOWN INDICATION
     Dosage: 10 MG, UNKNOWN
     Route: 065
  15. TRIATEC                            /00885601/ [Concomitant]
     Indication: PRODUCT USED FOR UNKNOWN INDICATION
     Dosage: 1 DF, UNKNOWN
     Route: 065
  16. TRILEPTAL [Concomitant]
     Indication: PRODUCT USED FOR UNKNOWN INDICATION
     Dosage: 600 MG, QD
     Route: 065

REACTIONS (16)
  - Renal failure [Recovered/Resolved]
  - Loss of consciousness [Unknown]
  - Confusional state [Recovered/Resolved]
  - Depression [Not Recovered/Not Resolved]
  - Rhabdomyolysis [Recovered/Resolved]
  - Pulmonary embolism [Recovered/Resolved]
  - Deep vein thrombosis [Recovered/Resolved]
  - Leukocytosis [Unknown]
  - Hypernatraemia [Unknown]
  - Fall [Unknown]
  - Gait disturbance [Unknown]
  - Urinary tract infection [Unknown]
  - Asthenia [Unknown]
  - Urinary retention [Unknown]
  - Off label use [Recovered/Resolved]
  - Drug interaction [Unknown]
